FAERS Safety Report 8340475-9 (Version None)
Quarter: 2012Q2

REPORT INFORMATION
  Report Type: 
  Country: None (occurrence: None)
  Receive Date: 20120507
  Receipt Date: 20120425
  Transmission Date: 20120825
  Serious: Yes (Hospitalization)
  Sender: FDA-Public Use
  Company Number: GB-JNJFOC-20120211921

PATIENT
  Age: 21 Month
  Sex: Male

DRUGS (3)
  1. ACETAMINOPHEN [Suspect]
     Indication: HEADACHE
     Route: 065
     Dates: start: 20120203
  2. ^ASTHMA INHALER^ [Concomitant]
     Indication: ASTHMA
  3. ACETAMINOPHEN [Suspect]
     Route: 065

REACTIONS (2)
  - LOWER RESPIRATORY TRACT INFECTION [None]
  - VIRAEMIA [None]
